FAERS Safety Report 6070590-4 (Version None)
Quarter: 2009Q1

REPORT INFORMATION
  Report Type: 
  Country: None (occurrence: None)
  Receive Date: 20090209
  Receipt Date: 20090128
  Transmission Date: 20090719
  Serious: Yes (Other)
  Sender: FDA-Public Use
  Company Number: GB-PFIZER INC-2009163129

PATIENT

DRUGS (1)
  1. NORVASC [Suspect]
     Dosage: 5 MG, 2X/DAY

REACTIONS (9)
  - CEREBROVASCULAR ACCIDENT [None]
  - DRUG HYPERSENSITIVITY [None]
  - DRUG INTOLERANCE [None]
  - DRY MOUTH [None]
  - HYPERTENSION [None]
  - MYALGIA [None]
  - OEDEMA PERIPHERAL [None]
  - OROPHARYNGEAL BLISTERING [None]
  - SHOCK [None]
